FAERS Safety Report 10445066 (Version 1)
Quarter: 2014Q3

REPORT INFORMATION
  Report Type: Spontaneous
  Country: US (occurrence: US)
  Receive Date: 20140910
  Receipt Date: 20140910
  Transmission Date: 20150326
  Serious: Yes (Other)
  Sender: FDA-Public Use
  Company Number: US-BRISTOL-MYERS SQUIBB COMPANY-21364054

PATIENT
  Age: 69 Year
  Sex: Female

DRUGS (1)
  1. ORENCIA [Suspect]
     Active Substance: ABATACEPT

REACTIONS (3)
  - Fall [Unknown]
  - Pelvic fracture [Unknown]
  - Intervertebral disc protrusion [Unknown]
